FAERS Safety Report 12634083 (Version 1)
Quarter: 2016Q3

REPORT INFORMATION
  Report Type: Spontaneous
  Country: US (occurrence: US)
  Receive Date: 20160809
  Receipt Date: 20160809
  Transmission Date: 20161109
  Serious: No
  Sender: FDA-Public Use
  Company Number: US-GLAXOSMITHKLINE-A0858947A

PATIENT
  Age: 52 Year
  Sex: Female

DRUGS (6)
  1. LOVAZA [Suspect]
     Active Substance: OMEGA-3-ACID ETHYL ESTERS
     Indication: BLOOD TRIGLYCERIDES INCREASED
     Dosage: 2 DF, BID
     Route: 048
     Dates: start: 201002
  2. LEVOTHYROXINE. [Concomitant]
     Active Substance: LEVOTHYROXINE
  3. CITRACAL [Concomitant]
     Active Substance: CALCIUM CITRATE
  4. GLUCOSAMINE [Concomitant]
     Active Substance: GLUCOSAMINE
  5. NEXIUM [Concomitant]
     Active Substance: ESOMEPRAZOLE MAGNESIUM
  6. VITAMIN C [Concomitant]
     Active Substance: ASCORBIC ACID

REACTIONS (5)
  - Product substitution issue [Unknown]
  - Therapeutic response changed [Unknown]
  - Therapeutic response decreased [Unknown]
  - Laboratory test abnormal [Unknown]
  - Flatulence [Not Recovered/Not Resolved]

NARRATIVE: CASE EVENT DATE: 201003
